FAERS Safety Report 6518585-8 (Version None)
Quarter: 2009Q4

REPORT INFORMATION
  Report Type: 
  Country: None (occurrence: None)
  Receive Date: 20091228
  Receipt Date: 20091222
  Transmission Date: 20100525
  Serious: Yes (Death)
  Sender: FDA-Public Use
  Company Number: US-CELGENEUS-163-21880-09121785

PATIENT
  Sex: Female

DRUGS (4)
  1. REVLIMID [Suspect]
     Indication: MULTIPLE MYELOMA
     Route: 048
     Dates: start: 20091001, end: 20090101
  2. REVLIMID [Suspect]
     Route: 048
     Dates: start: 20071001, end: 20080101
  3. REVLIMID [Suspect]
     Route: 048
     Dates: start: 20080101, end: 20080301
  4. REVLIMID [Suspect]
     Route: 048
     Dates: start: 20080301, end: 20080401

REACTIONS (2)
  - INFECTION [None]
  - MULTIPLE MYELOMA [None]
